FAERS Safety Report 11783663 (Version 1)
Quarter: 2015Q4

REPORT INFORMATION
  Report Type: Spontaneous
  Country: JP (occurrence: JP)
  Receive Date: 20151127
  Receipt Date: 20151127
  Transmission Date: 20160305
  Serious: Yes (Other)
  Sender: FDA-Public Use
  Company Number: JP-BRISTOL-MYERS SQUIBB COMPANY-BMS-2015-082206

PATIENT
  Sex: Male

DRUGS (2)
  1. S. TAC EVE [Concomitant]
     Indication: NASOPHARYNGITIS
     Dosage: UNK
     Route: 065
  2. ABILIFY [Suspect]
     Active Substance: ARIPIPRAZOLE
     Indication: PRODUCT USED FOR UNKNOWN INDICATION
     Dosage: 18 MG, QD
     Route: 048

REACTIONS (1)
  - Delusion [Unknown]

NARRATIVE: CASE EVENT DATE: 201511
